FAERS Safety Report 25936259 (Version 1)
Quarter: 2025Q4

REPORT INFORMATION
  Report Type: Spontaneous
  Country: US (occurrence: US)
  Receive Date: 20251017
  Receipt Date: 20251017
  Transmission Date: 20260118
  Serious: No
  Sender: TEVA
  Company Number: US-TEVA-VS-3380414

PATIENT
  Sex: Female

DRUGS (1)
  1. NORA BE [Suspect]
     Active Substance: NORETHINDRONE
     Indication: Product used for unknown indication
     Route: 048

REACTIONS (3)
  - Nausea [Unknown]
  - Pruritus [Unknown]
  - Headache [Unknown]
